FAERS Safety Report 24782493 (Version 2)
Quarter: 2025Q1

REPORT INFORMATION
  Report Type: Spontaneous
  Country: SE (occurrence: SE)
  Receive Date: 20241227
  Receipt Date: 20250109
  Transmission Date: 20250408
  Serious: Yes (Death, Other)
  Sender: BRISTOL-MYERS SQUIBB COMPANY
  Company Number: SE-BRISTOL-MYERS SQUIBB COMPANY-2024-199257

PATIENT
  Age: 92 Year

DRUGS (1)
  1. ELIQUIS [Suspect]
     Active Substance: APIXABAN
     Indication: Product used for unknown indication

REACTIONS (1)
  - Accidental death [Fatal]

NARRATIVE: CASE EVENT DATE: 20241201
